FAERS Safety Report 4940112-7 (Version None)
Quarter: 2006Q1

REPORT INFORMATION
  Report Type: 
  Country: None (occurrence: None)
  Receive Date: 20060310
  Receipt Date: 20060302
  Transmission Date: 20060701
  Serious: Yes (Death)
  Sender: FDA-Public Use
  Company Number: 2006AC00373

PATIENT
  Age: 30 Year
  Sex: Male
  Weight: 73 kg

DRUGS (16)
  1. PROPOFOL [Suspect]
     Indication: ANAESTHESIA
  2. MIDAZOLAM HCL [Suspect]
     Indication: GENERAL ANAESTHESIA
  3. FENTANYL CITRATE [Suspect]
     Indication: GENERAL ANAESTHESIA
  4. ATRACURIUM [Suspect]
     Indication: GENERAL ANAESTHESIA
  5. ATRACURIUM [Suspect]
  6. SEVOFLURANE [Suspect]
  7. HYDROCORTISONE [Suspect]
     Route: 042
  8. LIDOCAINE [Concomitant]
     Indication: ANAESTHESIA
  9. DEXAMETHASONE [Concomitant]
     Indication: BACK PAIN
     Route: 048
  10. DEXAMETHASONE [Concomitant]
     Indication: MOTOR DYSFUNCTION
     Route: 048
  11. DIAZEPAM [Concomitant]
     Indication: MOTOR DYSFUNCTION
  12. DIAZEPAM [Concomitant]
     Indication: BACK PAIN
  13. DICLOFENAC EPOLAMINE PATCH [Concomitant]
     Indication: BACK PAIN
  14. DICLOFENAC EPOLAMINE PATCH [Concomitant]
     Indication: MOTOR DYSFUNCTION
  15. TRAMADOL HCL [Concomitant]
     Indication: BACK PAIN
  16. TRAMADOL HCL [Concomitant]
     Indication: MOTOR DYSFUNCTION

REACTIONS (32)
  - ANAESTHETIC COMPLICATION [None]
  - ANAPHYLACTIC REACTION [None]
  - BLOOD BICARBONATE DECREASED [None]
  - BLOOD CHLORIDE INCREASED [None]
  - BLOOD PH DECREASED [None]
  - BRADYCARDIA [None]
  - CIRCULATORY COLLAPSE [None]
  - COUGH [None]
  - CYANOSIS [None]
  - DRUG ABUSER [None]
  - DYSKINESIA [None]
  - ELECTROCARDIOGRAM QRS COMPLEX [None]
  - ELECTROCARDIOGRAM QRS COMPLEX PROLONGED [None]
  - GASTROINTESTINAL HAEMORRHAGE [None]
  - HAEMATOCRIT DECREASED [None]
  - HAEMOGLOBIN DECREASED [None]
  - HEPATIC CONGESTION [None]
  - OXYGEN SATURATION DECREASED [None]
  - PALLOR [None]
  - PCO2 DECREASED [None]
  - PLATELET COUNT DECREASED [None]
  - PO2 INCREASED [None]
  - POOR PERIPHERAL CIRCULATION [None]
  - PULSE ABSENT [None]
  - RENAL TUBULAR NECROSIS [None]
  - SUPRAVENTRICULAR TACHYCARDIA [None]
  - THERAPEUTIC PRODUCT INEFFECTIVE [None]
  - TRYPTASE [None]
  - VENTRICULAR EXTRASYSTOLES [None]
  - VENTRICULAR FIBRILLATION [None]
  - WHEEZING [None]
  - WHITE BLOOD CELL COUNT INCREASED [None]
